FAERS Safety Report 26076014 (Version 1)
Quarter: 2025Q4

REPORT INFORMATION
  Report Type: Report from Study
  Country: KR (occurrence: KR)
  Receive Date: 20251121
  Receipt Date: 20251121
  Transmission Date: 20260117
  Serious: Yes (Death)
  Sender: ABBVIE
  Company Number: KR-PFIZER INC-PV202500134646

PATIENT
  Age: 60 Year
  Sex: Female
  Weight: 41.5 kg

DRUGS (22)
  1. AVIBACTAM SODIUM\CEFTAZIDIME [Suspect]
     Active Substance: AVIBACTAM SODIUM\CEFTAZIDIME
     Indication: Pneumonia
     Dosage: 3 VIAL, 3X/DAY (TID)
     Route: 042
     Dates: start: 20251005, end: 20251031
  2. RIFAMPIN [Concomitant]
     Active Substance: RIFAMPIN
     Indication: Atypical mycobacterial infection
     Dosage: UNK
     Route: 048
     Dates: start: 20250902
  3. ZYVOX [Concomitant]
     Active Substance: LINEZOLID
     Indication: Infection
     Dosage: UNK
     Route: 042
     Dates: start: 20251030, end: 20251031
  4. QUETIAPINE [Concomitant]
     Active Substance: QUETIAPINE
     Indication: Delirium
     Dosage: UNK
     Route: 048
     Dates: start: 20251028, end: 20251029
  5. HYDROCORTISONE SODIUM SUCCINATE [Concomitant]
     Active Substance: HYDROCORTISONE SODIUM SUCCINATE
     Indication: Infection
     Dosage: UNK
     Route: 042
     Dates: start: 20250918, end: 20251030
  6. AMBROXOL [Concomitant]
     Active Substance: AMBROXOL
     Indication: Infection
     Dosage: UNK
     Route: 042
     Dates: start: 20250828, end: 20251031
  7. PANTOPRAZOLE SODIUM [Concomitant]
     Active Substance: PANTOPRAZOLE SODIUM
     Indication: Gastritis prophylaxis
     Dosage: UNK
     Route: 042
     Dates: start: 20251014, end: 20251031
  8. Clari [Concomitant]
     Indication: Atypical mycobacterial infection
     Dosage: UNK
     Route: 048
     Dates: start: 20250911
  9. ACETYLCYSTEINE [Concomitant]
     Active Substance: ACETYLCYSTEINE
     Indication: Infection
     Dosage: UNK
     Route: 042
     Dates: start: 20251014, end: 20251031
  10. ERDOSTEINE [Concomitant]
     Active Substance: ERDOSTEINE
     Indication: Infection
     Dosage: UNK
     Route: 048
     Dates: start: 20250828
  11. VANCOMYCIN [Concomitant]
     Active Substance: VANCOMYCIN
     Indication: Infection
     Dosage: UNK
     Route: 042
     Dates: start: 20251020, end: 20251030
  12. Vecaron [Concomitant]
     Indication: Sedative therapy
     Dosage: UNK
     Route: 042
     Dates: start: 20250918, end: 20251031
  13. Tazolactam [Concomitant]
     Indication: Infection
     Dosage: UNK
     Route: 042
     Dates: start: 20251024, end: 20251025
  14. PROPOFOL [Concomitant]
     Active Substance: PROPOFOL
     Indication: Sedative therapy
     Dosage: UNK
     Route: 042
     Dates: start: 20251017, end: 20251031
  15. TRANSAMIN [Concomitant]
     Active Substance: TRANEXAMIC ACID
     Indication: Haemorrhage prophylaxis
     Dosage: UNK
     Route: 048
     Dates: start: 20250828, end: 20251029
  16. MYAMBUTOL [Concomitant]
     Active Substance: ETHAMBUTOL HYDROCHLORIDE
     Indication: Atypical mycobacterial infection
     Dosage: UNK
     Route: 048
     Dates: start: 20250904
  17. K contin [Concomitant]
     Indication: Prophylaxis
     Dosage: UNK
     Route: 048
     Dates: start: 20250927
  18. Remiva [Concomitant]
     Indication: Sedative therapy
     Dosage: UNK
     Route: 042
     Dates: start: 20250918, end: 20251027
  19. AVELOX [Concomitant]
     Active Substance: MOXIFLOXACIN HYDROCHLORIDE
     Indication: Atypical mycobacterial infection
     Dosage: UNK
     Route: 048
     Dates: start: 20250918
  20. LASIX [Concomitant]
     Active Substance: FUROSEMIDE
     Indication: Prophylaxis
     Dosage: UNK
     Route: 042
     Dates: start: 20251014, end: 20251031
  21. METHYLPREDNISOLONE [Concomitant]
     Active Substance: METHYLPREDNISOLONE
     Indication: Rheumatoid arthritis
     Dosage: UNK
     Route: 048
     Dates: start: 20250827
  22. KETAMINE [Concomitant]
     Active Substance: KETAMINE
     Indication: Sedative therapy
     Dosage: UNK
     Route: 042
     Dates: start: 20250924, end: 20251031

REACTIONS (1)
  - Pneumonia [Fatal]

NARRATIVE: CASE EVENT DATE: 20251031
